FAERS Safety Report 17750470 (Version 1)
Quarter: 2020Q2

REPORT INFORMATION
  Report Type: Spontaneous
  Country: US (occurrence: US)
  Receive Date: 20200505
  Receipt Date: 20200505
  Transmission Date: 20200714
  Serious: Yes (Hospitalization)
  Sender: FDA-Public Use
  Company Number: None

PATIENT
  Age: 62 Year
  Sex: Male

DRUGS (46)
  1. FORTEO [Suspect]
     Active Substance: TERIPARATIDE
     Indication: OSTEOPOROTIC FRACTURE
     Dosage: ?          OTHER STRENGTH:600 MCG/2.4 ML;?
     Route: 058
     Dates: start: 20180217
  2. CELLCEPT [Concomitant]
     Active Substance: MYCOPHENOLATE MOFETIL\MYCOPHENOLATE MOFETIL HYDROCHLORIDE
  3. CETIRIZINE [Concomitant]
     Active Substance: CETIRIZINE HYDROCHLORIDE
  4. FLUTICASONE. [Concomitant]
     Active Substance: FLUTICASONE
  5. METFORMIN [Concomitant]
     Active Substance: METFORMIN HYDROCHLORIDE
  6. METOPROL TAR [Concomitant]
  7. OSELTAMIVIR [Concomitant]
     Active Substance: OSELTAMIVIR
  8. ASPIRIN. [Concomitant]
     Active Substance: ASPIRIN
  9. AZITHROMYCIN ANHYDROUS. [Concomitant]
     Active Substance: AZITHROMYCIN ANHYDROUS
  10. FINASTERIDE. [Concomitant]
     Active Substance: FINASTERIDE
  11. FUROSEMIDE. [Concomitant]
     Active Substance: FUROSEMIDE
  12. GABAPENTIN. [Concomitant]
     Active Substance: GABAPENTIN
  13. METOCLOPRAM [Concomitant]
     Active Substance: METOCLOPRAMIDE
  14. PREDNISONE. [Concomitant]
     Active Substance: PREDNISONE
  15. ELIQUIS [Concomitant]
     Active Substance: APIXABAN
  16. MAG OXIDE [Concomitant]
     Active Substance: MAGNESIUM OXIDE
  17. MI- ACID GAS CHW [Concomitant]
  18. ROSUVASTATIN. [Concomitant]
     Active Substance: ROSUVASTATIN
  19. AMOXICILLIN. [Concomitant]
     Active Substance: AMOXICILLIN
  20. ESCITALOPRAM [Concomitant]
     Active Substance: ESCITALOPRAM OXALATE
  21. FOLIC ACID. [Concomitant]
     Active Substance: FOLIC ACID
  22. IPRATROPIUM [Concomitant]
     Active Substance: IPRATROPIUM
  23. MULTI VITAMIN [Concomitant]
     Active Substance: VITAMINS
  24. TACROLIMUS. [Concomitant]
     Active Substance: TACROLIMUS
  25. FLORANEX [Concomitant]
     Active Substance: LACTOBACILLUS ACIDOPHILUS\LACTOBACILLUS DELBRUECKII SUBSP. BULGARICUS
  26. MONTELUKAST [Concomitant]
     Active Substance: MONTELUKAST SODIUM
  27. NYSTATIN. [Concomitant]
     Active Substance: NYSTATIN
  28. SMZ/TMP DS [Concomitant]
     Active Substance: SULFAMETHOXAZOLE\TRIMETHOPRIM
  29. VALGANCICLOV [Concomitant]
  30. VIRT- PHOS [Concomitant]
  31. ACETYLCYST [Concomitant]
  32. ACETAMIN [Concomitant]
     Active Substance: ACETAMINOPHEN
  33. AMIKACIN. [Concomitant]
     Active Substance: AMIKACIN
  34. ASPIRIN. [Concomitant]
     Active Substance: ASPIRIN
  35. CARAFATE [Concomitant]
     Active Substance: SUCRALFATE
  36. LEVOTHYROXIN [Concomitant]
     Active Substance: LEVOTHYROXINE
  37. MODAFINIL. [Concomitant]
     Active Substance: MODAFINIL
  38. MYCOPHENOLIC [Concomitant]
     Active Substance: MYCOPHENOLIC ACID
  39. PANTOPRAZOLE [Concomitant]
     Active Substance: PANTOPRAZOLE
  40. RAMELTEON [Concomitant]
     Active Substance: RAMELTEON
  41. TRAMADOL HCL [Concomitant]
     Active Substance: TRAMADOL HYDROCHLORIDE
  42. AMOX/K CLAV [Concomitant]
     Active Substance: AMOXICILLIN\CLAVULANATE POTASSIUM
  43. ENOXAPARIN [Concomitant]
     Active Substance: ENOXAPARIN
  44. FEROSUL [Concomitant]
     Active Substance: FERROUS SULFATE
  45. VITAMIN D [Concomitant]
     Active Substance: VITAMIN D NOS
  46. XARELTO [Concomitant]
     Active Substance: RIVAROXABAN

REACTIONS (1)
  - Hernia [None]

NARRATIVE: CASE EVENT DATE: 20200422
